FAERS Safety Report 4653483-6 (Version None)
Quarter: 2005Q2

REPORT INFORMATION
  Report Type: 
  Country: None (occurrence: None)
  Receive Date: 20050505
  Receipt Date: 20050425
  Transmission Date: 20051028
  Serious: Yes (Hospitalization, Other)
  Sender: FDA-Public Use
  Company Number: ES-GLAXOSMITHKLINE-B0379840A

PATIENT
  Age: 79 Year
  Sex: Female

DRUGS (2)
  1. PAROXETINE HCL [Suspect]
     Dosage: 10MG PER DAY
     Route: 048
     Dates: start: 20040101, end: 20040101
  2. REXER [Suspect]
     Dosage: 10MG PER DAY
     Route: 048
     Dates: start: 20040101, end: 20040101

REACTIONS (1)
  - ANTIDIURETIC HORMONE ABNORMALITY [None]
